FAERS Safety Report 15628692 (Version 2)
Quarter: 2018Q4

REPORT INFORMATION
  Report Type: Spontaneous
  Country: SE (occurrence: SE)
  Receive Date: 20181116
  Receipt Date: 20181207
  Transmission Date: 20190205
  Serious: Yes (Hospitalization)
  Sender: FDA-Public Use
  Company Number: SE-TEVA-2018-SE-974880

PATIENT
  Age: 76 Year
  Sex: Female

DRUGS (9)
  1. WARAN [Concomitant]
     Active Substance: WARFARIN SODIUM
     Indication: CARDIAC FAILURE
     Route: 065
  2. COMBIGAN [Concomitant]
     Active Substance: BRIMONIDINE TARTRATE\TIMOLOL MALEATE
     Route: 065
  3. METOPROLOL TARTRATE. [Suspect]
     Active Substance: METOPROLOL TARTRATE
     Dosage: 25 MILLIGRAM DAILY;
     Route: 048
     Dates: end: 20100121
  4. RAMIPRIL. [Suspect]
     Active Substance: RAMIPRIL
     Dosage: 1 DOSAGE FORMS DAILY;
     Route: 048
     Dates: end: 20100121
  5. AZOPT [Concomitant]
     Active Substance: BRINZOLAMIDE
     Dosage: 10 MG/ML
     Route: 065
  6. SPIRONOLACTONE. [Concomitant]
     Active Substance: SPIRONOLACTONE
     Route: 065
  7. CITALOPRAM [Concomitant]
     Active Substance: CITALOPRAM HYDROBROMIDE
     Route: 065
  8. DIGOXIN. [Suspect]
     Active Substance: DIGOXIN
     Dosage: .13 MILLIGRAM DAILY;
     Route: 048
     Dates: end: 20100121
  9. FURIX [Concomitant]
     Active Substance: FUROSEMIDE
     Route: 065

REACTIONS (2)
  - Bradycardia [Recovered/Resolved]
  - Blood creatinine increased [Not Recovered/Not Resolved]

NARRATIVE: CASE EVENT DATE: 20100121
